FAERS Safety Report 4467967-7 (Version None)
Quarter: 2004Q4

REPORT INFORMATION
  Report Type: 
  Country: None (occurrence: None)
  Receive Date: 20041001
  Receipt Date: 20040823
  Transmission Date: 20050328
  Serious: Yes (Other)
  Sender: FDA-Public Use
  Company Number: ZAWYE023208SEP04

PATIENT
  Sex: Female

DRUGS (2)
  1. EFFEXOR XR [Suspect]
     Indication: DEPRESSION
     Dosage: 150MG DAILY ORAL
     Route: 048
  2. STILNOX (ZOLPIDEM) [Suspect]

REACTIONS (2)
  - DIPLOPIA [None]
  - DRUG WITHDRAWAL SYNDROME [None]
